FAERS Safety Report 8359799-4 (Version None)
Quarter: 2012Q2

REPORT INFORMATION
  Report Type: 
  Country: None (occurrence: None)
  Receive Date: 20120515
  Receipt Date: 20120507
  Transmission Date: 20120825
  Serious: Yes (Other)
  Sender: FDA-Public Use
  Company Number: PHEH2012US006276

PATIENT
  Sex: Female

DRUGS (9)
  1. ASCORBIC ACID [Concomitant]
     Dosage: 500 MG, QD
  2. METHYLCOBALAMIN [Concomitant]
     Dosage: 500 UG, QD
  3. LIBRAX [Concomitant]
  4. CALCIUM [Concomitant]
     Dosage: 600 MG, QD
  5. GILENYA [Suspect]
     Indication: MULTIPLE SCLEROSIS
     Dosage: 0.5 MG, DAILY
     Route: 048
     Dates: start: 20110323
  6. TRIAMTERENE AND HYDROCHLOROTHIAZID [Concomitant]
     Dosage: 1 DF, QD
  7. VITAMIN D [Concomitant]
     Dosage: 2000 IU, QD
  8. KLOR-CON [Concomitant]
     Dosage: 10 MG, QD
  9. ONE A DAY [Concomitant]
     Dosage: 1 DF, QD

REACTIONS (12)
  - RASH [None]
  - FATIGUE [None]
  - SJOGREN'S SYNDROME [None]
  - PAIN [None]
  - ANTINUCLEAR ANTIBODY POSITIVE [None]
  - NEUTROPHIL COUNT DECREASED [None]
  - CUTANEOUS LUPUS ERYTHEMATOSUS [None]
  - SKIN LESION [None]
  - LYMPHOCYTE COUNT DECREASED [None]
  - WHITE BLOOD CELL COUNT DECREASED [None]
  - ERYTHEMA [None]
  - HAEMATOCRIT INCREASED [None]
